FAERS Safety Report 6202571-1 (Version None)
Quarter: 2009Q2

REPORT INFORMATION
  Report Type: 
  Country: None (occurrence: None)
  Receive Date: 20090526
  Receipt Date: 20090516
  Transmission Date: 20091009
  Serious: Yes (Other)
  Sender: FDA-Public Use
  Company Number: US-AMGEN-QUU347483

PATIENT
  Sex: Female

DRUGS (1)
  1. ENBREL [Suspect]
     Indication: RHEUMATOID ARTHRITIS
     Route: 058
     Dates: start: 20000615

REACTIONS (6)
  - BRONCHITIS [None]
  - FALL [None]
  - LOCAL SWELLING [None]
  - NEPHROLITHIASIS [None]
  - PAINFUL RESPIRATION [None]
  - RHEUMATOID ARTHRITIS [None]
